FAERS Safety Report 16751492 (Version 1)
Quarter: 2019Q3

REPORT INFORMATION
  Report Type: Spontaneous
  Country: US (occurrence: US)
  Receive Date: 20190828
  Receipt Date: 20190828
  Transmission Date: 20191005
  Serious: Yes (Hospitalization)
  Sender: FDA-Public Use
  Company Number: US-JNJFOC-20190825574

PATIENT
  Sex: Male

DRUGS (1)
  1. REMICADE [Suspect]
     Active Substance: INFLIXIMAB
     Indication: PSORIASIS
     Route: 042
     Dates: start: 2004, end: 20181224

REACTIONS (3)
  - Serum sickness [Recovered/Resolved]
  - Arthralgia [Not Recovered/Not Resolved]
  - Drug specific antibody present [Unknown]

NARRATIVE: CASE EVENT DATE: 2019
